FAERS Safety Report 4936857-5 (Version None)
Quarter: 2006Q1

REPORT INFORMATION
  Report Type: 
  Country: None (occurrence: None)
  Receive Date: 20060307
  Receipt Date: 20060228
  Transmission Date: 20060701
  Serious: Yes (Death, Life-Threatening, Hospitalization, Disabling)
  Sender: FDA-Public Use
  Company Number: US-MERCK-0603USA00154

PATIENT
  Age: 45 Year
  Sex: Female

DRUGS (2)
  1. FOSAMAX [Suspect]
     Route: 048
  2. [THERAPY UNSPECIFIED] [Concomitant]
     Route: 065

REACTIONS (7)
  - CARDIO-RESPIRATORY ARREST [None]
  - DEATH [None]
  - DRUG ADMINISTRATION ERROR [None]
  - NAUSEA [None]
  - OESOPHAGEAL ULCER [None]
  - SEPTIC SHOCK [None]
  - STOMACH DISCOMFORT [None]
